FAERS Safety Report 18875318 (Version 1)
Quarter: 2021Q1

REPORT INFORMATION
  Report Type: Spontaneous
  Country: CN (occurrence: CN)
  Receive Date: 20210210
  Receipt Date: 20210210
  Transmission Date: 20210420
  Serious: Yes (Other)
  Sender: FDA-Public Use
  Company Number: CN-SA-2021SA027893

PATIENT
  Age: 74 Year
  Sex: Female

DRUGS (1)
  1. STILNOX [Suspect]
     Active Substance: ZOLPIDEM TARTRATE
     Indication: INSOMNIA
     Dosage: 10 MG, QD
     Route: 065
     Dates: start: 20200628, end: 20200702

REACTIONS (7)
  - Femoral neck fracture [Unknown]
  - Therapy cessation [Unknown]
  - Off label use [Unknown]
  - Confusional state [Unknown]
  - Gait inability [Unknown]
  - Fall [Unknown]
  - Hypotonia [Unknown]

NARRATIVE: CASE EVENT DATE: 20200701
